FAERS Safety Report 19358079 (Version 1)
Quarter: 2021Q2

REPORT INFORMATION
  Report Type: Spontaneous
  Country: US (occurrence: US)
  Receive Date: 20210601
  Receipt Date: 20210601
  Transmission Date: 20210717
  Serious: Yes (Hospitalization, Other)
  Sender: FDA-Public Use
  Company Number: US-AUROBINDO-08-AUR-05119

PATIENT
  Age: 59 Year
  Sex: Male

DRUGS (3)
  1. RISPERIDONE. [Suspect]
     Active Substance: RISPERIDONE
     Indication: PSYCHOTIC DISORDER
     Dosage: 2 MILLIGRAM, DAILY
     Route: 065
  2. RISPERIDONE. [Suspect]
     Active Substance: RISPERIDONE
     Dosage: 1.5 MILLIGRAM, TWO TIMES A DAY
     Route: 065
  3. LEVOTHYROXINE. [Concomitant]
     Active Substance: LEVOTHYROXINE
     Indication: HYPOTHYROIDISM
     Dosage: UNK
     Route: 065

REACTIONS (13)
  - Mental impairment [Unknown]
  - Extrapyramidal disorder [Unknown]
  - Staring [Unknown]
  - Bradykinesia [Unknown]
  - Gait disturbance [Unknown]
  - Speech disorder [Unknown]
  - Corneal reflex decreased [Unknown]
  - Angioedema [Unknown]
  - Orthostatic hypotension [Unknown]
  - Hypokinesia [Unknown]
  - Cogwheel rigidity [Unknown]
  - Posture abnormal [Unknown]
  - Syncope [Unknown]
